FAERS Safety Report 4297261-9 (Version None)
Quarter: 2004Q1

REPORT INFORMATION
  Report Type: 
  Country: None (occurrence: None)
  Receive Date: 20040213
  Receipt Date: 20040127
  Transmission Date: 20041129
  Serious: Yes (Other)
  Sender: FDA-Public Use
  Company Number: S03-USA-05191-01

PATIENT
  Age: 24 Year
  Sex: Male

DRUGS (2)
  1. CELEXA [Suspect]
     Indication: DEPRESSION
     Dosage: 30 MG QD PO
     Route: 048
     Dates: start: 20031109, end: 20040106
  2. WELBUTRIN (BUPROPION HYDROCHLORIDE) [Concomitant]

REACTIONS (2)
  - CATARACT [None]
  - EYE PAIN [None]
